FAERS Safety Report 6939922-6 (Version None)
Quarter: 2010Q3

REPORT INFORMATION
  Report Type: 
  Country: None (occurrence: None)
  Receive Date: 20100825
  Receipt Date: 20100813
  Transmission Date: 20110219
  Serious: Yes (Hospitalization, Other)
  Sender: FDA-Public Use
  Company Number: US-PFIZER INC-2010039101

PATIENT
  Age: 50 Year
  Sex: Male
  Weight: 120 kg

DRUGS (4)
  1. SUNITINIB MALATE [Suspect]
     Indication: THYROID CANCER
     Dosage: 50 MG, 1X/DAY X 4 WEEKS EVERY 6 WEEKS
     Route: 048
     Dates: start: 20071023, end: 20100311
  2. OMEGA 3/VITAMIN E [Concomitant]
  3. HYDROCHLOROTHIAZIDE/OLMESARTAN [Concomitant]
  4. SYNTHROID [Concomitant]

REACTIONS (1)
  - LARYNGEAL OEDEMA [None]
